FAERS Safety Report 9404789 (Version 1)
Quarter: 2013Q3

REPORT INFORMATION
  Report Type: Report from Study
  Country: CA (occurrence: CA)
  Receive Date: 20130717
  Receipt Date: 20130717
  Transmission Date: 20140515
  Serious: Yes (Other)
  Sender: FDA-Public Use
  Company Number: CA-JNJFOC-20130707637

PATIENT
  Age: 54 Year
  Sex: Male
  Weight: 95 kg

DRUGS (4)
  1. REMICADE [Suspect]
     Indication: UVEITIS
     Route: 042
     Dates: start: 20090101
  2. REMICADE [Suspect]
     Indication: PSORIATIC ARTHROPATHY
     Route: 042
     Dates: start: 20090101
  3. PREDNISOLONE [Concomitant]
     Dosage: RIGHT EYE
     Route: 047
  4. ATACAND [Concomitant]
     Dosage: 125/10 MG 1/2 TAB
     Route: 048

REACTIONS (2)
  - Uveitis [Not Recovered/Not Resolved]
  - Off label use [Unknown]
